FAERS Safety Report 6725315-3 (Version None)
Quarter: 2010Q2

REPORT INFORMATION
  Report Type: 
  Country: None (occurrence: None)
  Receive Date: 20100514
  Receipt Date: 20100513
  Transmission Date: 20101027
  Serious: Yes (Hospitalization, Other)
  Sender: FDA-Public Use
  Company Number: IT-BRISTOL-MYERS SQUIBB COMPANY-15065709

PATIENT
  Age: 78 Year
  Sex: Female

DRUGS (2)
  1. COUMADIN [Suspect]
     Indication: ATRIAL FIBRILLATION
     Route: 048
     Dates: start: 20091001, end: 20100401
  2. PLAVIX [Suspect]
     Indication: AORTIC BYPASS
     Dosage: PLAVIX 75 MG FILM COATED ORAL TABS
     Route: 048
     Dates: start: 20081212, end: 20100401

REACTIONS (3)
  - HAEMATOMA [None]
  - INJURY [None]
  - INTERNATIONAL NORMALISED RATIO DECREASED [None]
